FAERS Safety Report 8439529-8 (Version None)
Quarter: 2012Q2

REPORT INFORMATION
  Report Type: 
  Country: None (occurrence: None)
  Receive Date: 20120615
  Receipt Date: 20120608
  Transmission Date: 20120825
  Serious: Yes (Other)
  Sender: FDA-Public Use
  Company Number: US-PFIZER INC-2012139305

PATIENT
  Sex: Male

DRUGS (8)
  1. NEURONTIN [Suspect]
     Dosage: 300 MG, 3X/DAY
     Route: 048
  2. SEROQUEL [Concomitant]
     Dosage: 1-2 TABLETS EVERY BEDTIME
     Route: 048
  3. SENNA [Concomitant]
     Indication: CONSTIPATION
     Dosage: 2 DF, DAILY AS NEEDED
     Route: 048
  4. HYDROCHLOROTHIAZIDE [Concomitant]
     Dosage: 25 MG, 1X/DAY
     Route: 048
  5. LOPRESSOR [Concomitant]
     Dosage: 50 MG, 2X/DAY
     Route: 048
  6. ZANTAC [Concomitant]
     Dosage: 150 MG, 2X/DAY
     Route: 048
  7. VICODIN [Concomitant]
     Indication: PAIN
     Dosage: EVERY 4-6 HOURS AS NEEDED
     Route: 048
  8. COLACE [Concomitant]
     Dosage: 100 MG, 2X/DAY
     Route: 048

REACTIONS (2)
  - IMPAIRED WORK ABILITY [None]
  - MUSCULOSKELETAL PAIN [None]
